FAERS Safety Report 4514058-2 (Version None)
Quarter: 2004Q4

REPORT INFORMATION
  Report Type: 
  Country: None (occurrence: None)
  Receive Date: 20041130
  Receipt Date: 20040930
  Transmission Date: 20050328
  Serious: No
  Sender: FDA-Public Use
  Company Number: JP-GLAXOSMITHKLINE-B0347384A

PATIENT
  Age: 43 Year
  Sex: Male
  Weight: 69 kg

DRUGS (10)
  1. PAXIL [Suspect]
     Indication: DEPRESSION
     Route: 048
     Dates: start: 20040510, end: 20040825
  2. GOODMIN [Suspect]
     Indication: INSOMNIA
     Route: 048
     Dates: start: 20040510, end: 20040714
  3. SOLITA-T NO 3 [Concomitant]
     Indication: DEPRESSION
     Route: 042
     Dates: start: 20040510, end: 20040513
  4. ANAFRANIL [Concomitant]
     Indication: DEPRESSION
     Route: 042
     Dates: start: 20040510, end: 20040901
  5. LORAZEPAM [Concomitant]
     Indication: ANXIETY
     Dosage: 1.5MG PER DAY
     Route: 048
     Dates: start: 20040510, end: 20040517
  6. MEDEPOLIN [Concomitant]
     Dosage: 1.2MG PER DAY
     Route: 048
     Dates: start: 20040518, end: 20040916
  7. MYSLEE [Concomitant]
     Indication: INSOMNIA
     Dosage: 5MG PER DAY
     Route: 048
     Dates: start: 20040624, end: 20040630
  8. BENZALIN [Concomitant]
     Indication: INSOMNIA
     Route: 048
     Dates: start: 20040715
  9. INSUMIN [Concomitant]
     Indication: INSOMNIA
     Route: 048
     Dates: start: 20040729
  10. RIVOTRIL [Concomitant]
     Indication: EPILEPSY
     Dosage: 2MG PER DAY
     Route: 048
     Dates: start: 20040819

REACTIONS (3)
  - AMNESIA [None]
  - FALL [None]
  - LIMB INJURY [None]
